FAERS Safety Report 22721934 (Version 17)
Quarter: 2025Q2

REPORT INFORMATION
  Report Type: Report from Study
  Country: SA (occurrence: SA)
  Receive Date: 20230719
  Receipt Date: 20250514
  Transmission Date: 20250717
  Serious: Yes (Other)
  Sender: ROCHE
  Company Number: SA-ROCHE-3363622

PATIENT
  Age: 41 Year
  Sex: Male
  Weight: 84.0 kg

DRUGS (6)
  1. EVRYSDI [Suspect]
     Active Substance: RISDIPLAM
     Indication: Spinal muscular atrophy
     Route: 048
     Dates: start: 20230528
  2. EVRYSDI [Suspect]
     Active Substance: RISDIPLAM
     Route: 048
  3. EVRYSDI [Suspect]
     Active Substance: RISDIPLAM
     Route: 048
  4. EVRYSDI [Suspect]
     Active Substance: RISDIPLAM
     Route: 048
  5. EVRYSDI [Suspect]
     Active Substance: RISDIPLAM
     Route: 048
  6. EVRYSDI [Suspect]
     Active Substance: RISDIPLAM
     Route: 048

REACTIONS (13)
  - Dry mouth [Recovered/Resolved]
  - Hypoaesthesia [Recovered/Resolved]
  - Irritability [Recovered/Resolved]
  - Nervousness [Recovered/Resolved]
  - Gastroenteritis [Recovered/Resolved]
  - Dehydration [Recovered/Resolved]
  - Oropharyngeal pain [Recovered/Resolved]
  - Product dose omission issue [Unknown]
  - Vomiting [Recovered/Resolved]
  - Dizziness [Recovered/Resolved]
  - Nausea [Not Recovered/Not Resolved]
  - Headache [Not Recovered/Not Resolved]
  - Carbon dioxide increased [Unknown]

NARRATIVE: CASE EVENT DATE: 20230528
